FAERS Safety Report 21071785 (Version 2)
Quarter: 2022Q3

REPORT INFORMATION
  Report Type: Report from Study
  Country: US (occurrence: US)
  Receive Date: 20220712
  Receipt Date: 20220729
  Transmission Date: 20221026
  Serious: Yes (Hospitalization)
  Sender: FDA-Public Use
  Company Number: US-BAYER-2022A096539

PATIENT
  Age: 33 Year
  Sex: Female

DRUGS (4)
  1. ADEMPAS [Suspect]
     Active Substance: RIOCIGUAT
     Indication: Pulmonary arterial hypertension
     Dosage: UNK
  2. ADEMPAS [Suspect]
     Active Substance: RIOCIGUAT
     Indication: Pulmonary arterial hypertension
     Dosage: 2 MG, TID
     Route: 048
     Dates: start: 202108
  3. LIDOCAINE [Suspect]
     Active Substance: LIDOCAINE
  4. REMODULIN [Concomitant]
     Active Substance: TREPROSTINIL
     Dosage: 40.8NG/KG/MIN; 0.022 ML/HR

REACTIONS (4)
  - Hospitalisation [None]
  - Pain in jaw [None]
  - Drug hypersensitivity [None]
  - Nasal congestion [None]
